FAERS Safety Report 19767236 (Version 1)
Quarter: 2021Q3

REPORT INFORMATION
  Report Type: Spontaneous
  Country: US (occurrence: US)
  Receive Date: 20210827
  Receipt Date: 20210827
  Transmission Date: 20211014
  Serious: No
  Sender: FDA-Public Use
  Company Number: None

PATIENT
  Sex: Female

DRUGS (1)
  1. OTEZLA [Suspect]
     Active Substance: APREMILAST
     Indication: PSORIATIC ARTHROPATHY
     Route: 048
     Dates: start: 20210507

REACTIONS (6)
  - Vomiting [None]
  - Decreased appetite [None]
  - Weight decreased [None]
  - Nausea [None]
  - Mood swings [None]
  - Drug ineffective [None]
